FAERS Safety Report 12074667 (Version 2)
Quarter: 2016Q1

REPORT INFORMATION
  Report Type: Spontaneous
  Country: US (occurrence: US)
  Receive Date: 20160212
  Receipt Date: 20160224
  Transmission Date: 20160526
  Serious: No
  Sender: FDA-Public Use
  Company Number: US-PFIZER INC-2016078959

PATIENT
  Age: 66 Year
  Sex: Male

DRUGS (1)
  1. BOSULIF [Suspect]
     Active Substance: BOSUTINIB MONOHYDRATE
     Indication: CHRONIC MYELOID LEUKAEMIA
     Dosage: 100 MG, DAILY
     Route: 048
     Dates: start: 20160202

REACTIONS (6)
  - Malaise [Recovered/Resolved]
  - Blood test abnormal [Unknown]
  - Nausea [Recovering/Resolving]
  - Pollakiuria [Not Recovered/Not Resolved]
  - Swelling face [Recovered/Resolved]
  - Abdominal pain upper [Recovered/Resolved]
